FAERS Safety Report 9483681 (Version 7)
Quarter: 2014Q3

REPORT INFORMATION
  Report Type: Spontaneous
  Country: US (occurrence: US)
  Receive Date: 20130828
  Receipt Date: 20140731
  Transmission Date: 20150326
  Serious: Yes (Hospitalization, Other)
  Sender: FDA-Public Use
  Company Number: US-MERCK-1308USA012253

PATIENT
  Sex: Female
  Weight: 105.21 kg

DRUGS (2)
  1. FOSAMAX [Suspect]
     Active Substance: ALENDRONATE SODIUM
     Indication: OSTEOPENIA
     Dosage: 70 MG, QW
     Route: 048
     Dates: start: 2005, end: 201203
  2. ALENDRONATE SODIUM. [Suspect]
     Active Substance: ALENDRONATE SODIUM
     Indication: OSTEOPENIA
     Dosage: 70 MG, UNK
     Route: 048
     Dates: start: 2005, end: 201203

REACTIONS (74)
  - Nail operation [Unknown]
  - Bursitis [Unknown]
  - Raynaud^s phenomenon [Unknown]
  - Hypercholesterolaemia [Unknown]
  - Cartilage injury [Unknown]
  - Peripheral nerve injury [Unknown]
  - Hepatic steatosis [Unknown]
  - Blister [Unknown]
  - Mixed incontinence [Unknown]
  - Haematuria [Unknown]
  - Intervertebral disc protrusion [Unknown]
  - Abdominal pain [Unknown]
  - Intramedullary rod insertion [Unknown]
  - Femur fracture [Unknown]
  - Intramedullary rod insertion [Unknown]
  - Lumbar radiculopathy [Unknown]
  - Blood glucose decreased [Unknown]
  - Asthma [Unknown]
  - Epistaxis [Unknown]
  - Essential hypertension [Unknown]
  - Venous operation [Unknown]
  - Herpes zoster [Unknown]
  - Proteinuria [Unknown]
  - Abdominal pain upper [Unknown]
  - Nausea [Unknown]
  - Pain in extremity [Unknown]
  - Chondroplasty [Unknown]
  - Intervertebral disc degeneration [Unknown]
  - Rotator cuff syndrome [Unknown]
  - Antinuclear antibody positive [Unknown]
  - Seborrhoeic keratosis [Unknown]
  - Gastroenteritis viral [Unknown]
  - Flank pain [Unknown]
  - Gastritis [Unknown]
  - Pruritus [Unknown]
  - Muscle spasms [Unknown]
  - Cataract operation [Unknown]
  - Adverse event [Unknown]
  - Dry eye [Unknown]
  - Decreased appetite [Unknown]
  - Pneumonia [Unknown]
  - Back pain [Unknown]
  - Adverse event [Unknown]
  - Peripheral venous disease [Unknown]
  - Toe operation [Unknown]
  - Osteoarthritis [Unknown]
  - Migraine [Unknown]
  - Depression [Unknown]
  - Anxiety [Unknown]
  - Diverticulum intestinal [Unknown]
  - Irritable bowel syndrome [Unknown]
  - Cough [Unknown]
  - Tendonitis [Unknown]
  - Genital candidiasis [Unknown]
  - Chest pain [Unknown]
  - Bacteriuria [Unknown]
  - Enthesopathy [Unknown]
  - Spinal osteoarthritis [Unknown]
  - Drug ineffective [Unknown]
  - Femur fracture [Recovering/Resolving]
  - Telangiectasia [Unknown]
  - Pharyngitis [Unknown]
  - Fatigue [Unknown]
  - Restless legs syndrome [Unknown]
  - Asthenia [Unknown]
  - Arthralgia [Unknown]
  - Fibromyalgia [Unknown]
  - Adverse drug reaction [Unknown]
  - Hypokalaemia [Unknown]
  - Epicondylitis [Unknown]
  - Hyperglycaemia [Unknown]
  - Neoplasm skin [Unknown]
  - Gastrooesophageal reflux disease [Unknown]
  - Oedema peripheral [Unknown]

NARRATIVE: CASE EVENT DATE: 2005
